FAERS Safety Report 9383140 (Version 20)
Quarter: 2014Q2

REPORT INFORMATION
  Report Type: Spontaneous
  Country: US (occurrence: US)
  Receive Date: 20130704
  Receipt Date: 20140422
  Transmission Date: 20141212
  Serious: Yes (Hospitalization, Other)
  Sender: FDA-Public Use
  Company Number: US-009507513-1307USA001455

PATIENT
  Age: 60 Year
  Sex: Female

DRUGS (4)
  1. PEGINTRON [Suspect]
     Indication: HEPATITIS C
     Dosage: REDIPEN, ONCE A WEEK
     Dates: start: 20130628, end: 20130725
  2. PEGINTRON [Suspect]
     Dosage: VIAL, 0.5 CC, ONCE A WEEK, SUBCUTANEOUS
     Route: 058
     Dates: start: 20130726
  3. VICTRELIS [Suspect]
     Indication: HEPATITIS C
     Dosage: 4 CAP, EVERY EIGHT HOURS /3 X DAY, DOSE 800MG, DAILY DOSE : 2400MG
     Route: 048
     Dates: start: 20130726
  4. REBETOL [Suspect]
     Indication: HEPATITIS C
     Dosage: UNK, 2 AM AND PM, BID (TWICE A DAY)
     Route: 048
     Dates: start: 20130628

REACTIONS (64)
  - Fall [Unknown]
  - Diarrhoea [Unknown]
  - Dehydration [Unknown]
  - Feeling abnormal [Unknown]
  - White blood cell count decreased [Unknown]
  - Stress [Unknown]
  - Nausea [Unknown]
  - Fatigue [Unknown]
  - Myalgia [Unknown]
  - Amnesia [Unknown]
  - Nervousness [Unknown]
  - Back pain [Unknown]
  - Pain [Unknown]
  - Balance disorder [Unknown]
  - Fall [Unknown]
  - Influenza like illness [Unknown]
  - Rash [Unknown]
  - Pruritus [Unknown]
  - Infection [Unknown]
  - Feeling hot [Unknown]
  - Abdominal discomfort [Unknown]
  - Musculoskeletal discomfort [Unknown]
  - Contusion [Unknown]
  - Ammonia increased [Unknown]
  - Confusional state [Unknown]
  - Platelet count decreased [Unknown]
  - Stomatitis [Unknown]
  - Anger [Unknown]
  - Depression [Recovering/Resolving]
  - Injection site reaction [Unknown]
  - Pain [Unknown]
  - Memory impairment [Unknown]
  - Mouth ulceration [Unknown]
  - Thrombocytopenia [Unknown]
  - Leukopenia [Unknown]
  - Injection site reaction [Unknown]
  - Drug dose omission [Unknown]
  - Faecal incontinence [Unknown]
  - Tremor [Unknown]
  - Syncope [Unknown]
  - Road traffic accident [Unknown]
  - Breast pain [Unknown]
  - Face oedema [Unknown]
  - Eye swelling [Recovering/Resolving]
  - Musculoskeletal disorder [Unknown]
  - Connective tissue disorder [Unknown]
  - Disturbance in attention [Unknown]
  - Mental disorder [Unknown]
  - Insomnia [Unknown]
  - Laceration [Unknown]
  - Lip dry [Unknown]
  - Ataxia [Unknown]
  - Decreased appetite [Unknown]
  - Visual acuity reduced [Unknown]
  - Crying [Recovering/Resolving]
  - Cystitis [Unknown]
  - Decreased appetite [Unknown]
  - Visual impairment [Unknown]
  - Oedema peripheral [Unknown]
  - Skin disorder [Unknown]
  - Memory impairment [Unknown]
  - Cough [Unknown]
  - Mouth haemorrhage [Unknown]
  - Epistaxis [Unknown]
